FAERS Safety Report 14353160 (Version 6)
Quarter: 2018Q2

REPORT INFORMATION
  Report Type: Report from Study
  Country: GB (occurrence: GB)
  Receive Date: 20180104
  Receipt Date: 20180524
  Transmission Date: 20180711
  Serious: Yes (Hospitalization, Other)
  Sender: FDA-Public Use
  Company Number: GB-BRISTOL-MYERS SQUIBB COMPANY-BMS-2017-119864

PATIENT
  Age: 30 Year
  Sex: Female

DRUGS (8)
  1. HYDROXOCOBALAMIN [Concomitant]
     Active Substance: HYDROXOCOBALAMIN
     Indication: ANAEMIA
     Dosage: 1 ML, PER WEEK
     Route: 058
     Dates: start: 2009
  2. HUMALOG [Concomitant]
     Active Substance: INSULIN LISPRO
     Indication: DIABETES MELLITUS
     Dosage: 3 UNIT, QD
     Route: 058
     Dates: start: 20170828
  3. SERTRALINE [Concomitant]
     Active Substance: SERTRALINE HYDROCHLORIDE
     Indication: DEPRESSION
     Dosage: 100 MG, QD
     Route: 048
     Dates: start: 2017
  4. LEVOTHYROXINE. [Concomitant]
     Active Substance: LEVOTHYROXINE
     Indication: HYPOTHYROIDISM
     Dosage: 125 ?G, QD
     Route: 048
     Dates: start: 2004
  5. ABATACEPT [Suspect]
     Active Substance: ABATACEPT
     Indication: TYPE 1 DIABETES MELLITUS
     Dosage: 125 MG, QWK
     Route: 058
     Dates: start: 20171124, end: 20171222
  6. BISOPROLOL [Concomitant]
     Active Substance: BISOPROLOL
     Indication: PALPITATIONS
     Dosage: 2.5 MG, QD
     Route: 048
     Dates: start: 2009
  7. ABASAGLAR [Concomitant]
     Active Substance: INSULIN GLARGINE
     Indication: DIABETES MELLITUS
     Dosage: 6 UNIT, QD
     Route: 058
     Dates: start: 20170828
  8. DIAZEPAM. [Concomitant]
     Active Substance: DIAZEPAM
     Indication: ANXIETY
     Dosage: 2 MG, PRN
     Route: 048
     Dates: start: 20171102

REACTIONS (8)
  - Lower respiratory tract infection [Unknown]
  - Acute kidney injury [Recovering/Resolving]
  - Pyelonephritis [Unknown]
  - Product use in unapproved indication [Unknown]
  - Hypotension [Unknown]
  - Suicide attempt [Recovered/Resolved]
  - Sepsis [Recovered/Resolved]
  - Influenza [Unknown]

NARRATIVE: CASE EVENT DATE: 20171128
